FAERS Safety Report 5832353-1 (Version None)
Quarter: 2008Q3

REPORT INFORMATION
  Report Type: 
  Country: None (occurrence: None)
  Receive Date: 20080804
  Receipt Date: 20080729
  Transmission Date: 20090109
  Serious: Yes (Life-Threatening, Hospitalization)
  Sender: FDA-Public Use
  Company Number: D0058137A

PATIENT
  Age: 33 Year
  Sex: Female
  Weight: 140 kg

DRUGS (5)
  1. ARIXTRA [Suspect]
     Indication: THROMBOSIS PROPHYLAXIS
     Dosage: 2.5MG PER DAY
     Route: 058
     Dates: start: 20080625, end: 20080710
  2. IBUPROFEN TABLETS [Concomitant]
     Indication: PAIN
     Dosage: 800MG THREE TIMES PER DAY
     Route: 065
     Dates: start: 20080625, end: 20080710
  3. NEXIUM [Concomitant]
     Indication: PROPHYLAXIS
     Dosage: 40MG PER DAY
     Route: 065
     Dates: start: 20080625, end: 20080710
  4. METOCLOPRAMIDE [Concomitant]
     Dosage: 30DROP AS REQUIRED
     Route: 048
  5. SIMVASTATIN [Concomitant]
     Route: 048

REACTIONS (6)
  - CARDIOVASCULAR DISORDER [None]
  - CHEST DISCOMFORT [None]
  - CHEST PAIN [None]
  - DYSPNOEA [None]
  - PNEUMONIA [None]
  - PULMONARY EMBOLISM [None]
